FAERS Safety Report 5158741-7 (Version None)
Quarter: 2006Q4

REPORT INFORMATION
  Report Type: 
  Country: None (occurrence: None)
  Receive Date: 20061128
  Receipt Date: 20050630
  Transmission Date: 20070319
  Serious: Yes (Hospitalization)
  Sender: FDA-Public Use
  Company Number: CZ-ROCHE-409687

PATIENT
  Age: 59 Year
  Sex: Female

DRUGS (3)
  1. CAPECITABINE [Suspect]
     Indication: BREAST CANCER
     Route: 048
     Dates: start: 20050516, end: 20050522
  2. CAPECITABINE [Suspect]
     Dosage: CAPECITABINE DOSING WAS REDUCED DUE TO THE EVENT OF DESQUAMATION.
     Route: 048
  3. IXABEPILONE [Suspect]
     Indication: BREAST CANCER
     Route: 042
     Dates: start: 20050516, end: 20050516

REACTIONS (9)
  - ANAEMIA [None]
  - ARTHRALGIA [None]
  - ASPARTATE AMINOTRANSFERASE INCREASED [None]
  - DERMATITIS [None]
  - HYPERTENSION [None]
  - MYALGIA [None]
  - NEUTROPENIA [None]
  - SKIN EXFOLIATION [None]
  - STOMATITIS [None]
